FAERS Safety Report 4379100-0 (Version None)
Quarter: 2004Q2

REPORT INFORMATION
  Report Type: 
  Country: None (occurrence: None)
  Receive Date: 20040610
  Receipt Date: 20040601
  Transmission Date: 20050107
  Serious: Yes (Hospitalization, Other)
  Sender: FDA-Public Use
  Company Number: 2004021910

PATIENT
  Age: 65 Year
  Sex: Female
  Weight: 84.8226 kg

DRUGS (12)
  1. ZITHROMAX [Suspect]
     Indication: UPPER RESPIRATORY TRACT INFECTION
     Dosage: DAILY, ORAL
     Route: 048
     Dates: start: 20040302, end: 20040306
  2. MONTELUKAST SODIUM (MONTELUKAST SODIUM) [Concomitant]
  3. ESOMEPRAZOLE (ESOMEPRAZOLE) [Concomitant]
  4. ALPRAZOLAM [Concomitant]
  5. TRIAZOLAM [Concomitant]
  6. THYROID HORMONES (THYROID HORMONES) [Concomitant]
  7. LISINOPRIL [Concomitant]
  8. HYDROCHLOROTHIAZIDE [Concomitant]
  9. METOPROLOL (METOPROLOL) [Concomitant]
  10. DESLORATADINE  (DESLORATADINE) [Concomitant]
  11. SERETIDE MITE (FLUTICASONE PROPIONATE, SALMETEROL XINAFOATE) [Concomitant]
  12. GUAIFENESIN (GUAIFENESIN) [Concomitant]

REACTIONS (6)
  - DEAFNESS UNILATERAL [None]
  - FEAR [None]
  - INSOMNIA [None]
  - SUDDEN HEARING LOSS [None]
  - TINNITUS [None]
  - TROPONIN INCREASED [None]
